FAERS Safety Report 5179155-X (Version None)
Quarter: 2006Q4

REPORT INFORMATION
  Report Type: 
  Country: None (occurrence: None)
  Receive Date: 20061211
  Receipt Date: 20061127
  Transmission Date: 20070319
  Serious: Yes (Death)
  Sender: FDA-Public Use
  Company Number: 06116-0001028

PATIENT
  Age: 1 Day
  Sex: Male

DRUGS (3)
  1. INDOMETHACIN [Suspect]
     Indication: DRUG EXPOSURE DURING PREGNANCY
     Dosage: 25 MG; TID
  2. TERBUTALINE SULFATE [Suspect]
     Indication: DRUG EXPOSURE DURING PREGNANCY
     Dosage: 5 MG; Q4H
  3. TERBUTALINE SULFATE [Concomitant]

REACTIONS (11)
  - CAESAREAN SECTION [None]
  - CARDIAC HYPERTROPHY [None]
  - DRUG EXPOSURE DURING PREGNANCY [None]
  - DUCTUS ARTERIOSUS PREMATURE CLOSURE [None]
  - FOETAL DISTRESS SYNDROME [None]
  - PLACENTAL TRANSFUSION SYNDROME [None]
  - PREMATURE BABY [None]
  - RESPIRATORY FAILURE [None]
  - STILLBIRTH [None]
  - STREPTOCOCCAL SEPSIS [None]
  - THROMBOSIS [None]
